FAERS Safety Report 24580403 (Version 1)
Quarter: 2024Q4

REPORT INFORMATION
  Report Type: Spontaneous
  Country: US (occurrence: US)
  Receive Date: 20241105
  Receipt Date: 20241105
  Transmission Date: 20250114
  Serious: Yes (Death)
  Sender: PFIZER
  Company Number: US-PFIZER INC-PV202400128188

PATIENT
  Age: 88 Year
  Sex: Male

DRUGS (1)
  1. VYNDAMAX [Suspect]
     Active Substance: TAFAMIDIS
     Indication: Cardiac failure chronic
     Dosage: TAKE 1 CAPSULE (61 MG TOTAL) DAILY
     Route: 048

REACTIONS (2)
  - Cardiogenic shock [Fatal]
  - Acute left ventricular failure [Fatal]

NARRATIVE: CASE EVENT DATE: 20241003
